FAERS Safety Report 5101827-3 (Version None)
Quarter: 2006Q3

REPORT INFORMATION
  Report Type: 
  Country: None (occurrence: None)
  Receive Date: 20060731
  Receipt Date: 20060620
  Transmission Date: 20061208
  Serious: No
  Sender: FDA-Public Use
  Company Number: 2006PV015997

PATIENT
  Age: 68 Year
  Sex: Female
  Weight: 87.5442 kg

DRUGS (4)
  1. BYETTA [Suspect]
     Indication: DIABETES MELLITUS NON-INSULIN-DEPENDENT
     Dosage: 5 MCG;BID;SC
     Route: 058
     Dates: start: 20060418, end: 20060601
  2. STARLIX [Concomitant]
  3. METFORMIN HCL [Concomitant]
  4. ACTOS /USA/ [Concomitant]

REACTIONS (4)
  - ANOREXIA [None]
  - DEPRESSED MOOD [None]
  - NAUSEA [None]
  - WEIGHT DECREASED [None]
